FAERS Safety Report 4366403-9 (Version None)
Quarter: 2004Q2

REPORT INFORMATION
  Report Type: 
  Country: None (occurrence: None)
  Receive Date: 20040524
  Receipt Date: 20040507
  Transmission Date: 20050107
  Serious: Yes (Other)
  Sender: FDA-Public Use
  Company Number: NO-JNJFOC-20040303982

PATIENT
  Sex: Female

DRUGS (3)
  1. RISPERDAL [Suspect]
     Indication: PSYCHOTIC DISORDER
     Dosage: 6 MG IN 1 DAY ORAL
     Route: 048
  2. IMOVANE (ZOPICLONE) TABLETS [Suspect]
     Indication: SLEEP DISORDER
     Dosage: AS NECESSARY
  3. INSULIN INSULATARD (INSULIN INJECTION, ISOPHANE) INJECTION [Concomitant]

REACTIONS (7)
  - BLOOD GLUCOSE INCREASED [None]
  - CAESAREAN SECTION [None]
  - CLEFT LIP AND PALATE [None]
  - CONVULSION NEONATAL [None]
  - DRUG EXPOSURE DURING PREGNANCY [None]
  - PREGNANCY [None]
  - THORACIC VERTEBRA INJURY [None]
